FAERS Safety Report 17231817 (Version 1)
Quarter: 2020Q1

REPORT INFORMATION
  Report Type: Spontaneous
  Country: US (occurrence: US)
  Receive Date: 20200103
  Receipt Date: 20200103
  Transmission Date: 20200409
  Serious: Yes (Other)
  Sender: FDA-Public Use
  Company Number: NVSC2020US000442

PATIENT
  Age: 50 Year
  Sex: Female

DRUGS (4)
  1. PREDNISONE. [Suspect]
     Active Substance: PREDNISONE
     Indication: OCULAR HYPERAEMIA
     Dosage: 11 MG, QD
     Route: 048
  2. AZATHIOPRINE. [Suspect]
     Active Substance: AZATHIOPRINE
     Indication: EYE PAIN
  3. PREDNISONE. [Suspect]
     Active Substance: PREDNISONE
     Indication: EYE PAIN
  4. AZATHIOPRINE. [Suspect]
     Active Substance: AZATHIOPRINE
     Indication: OCULAR HYPERAEMIA
     Dosage: 100 MG, QD
     Route: 048

REACTIONS (1)
  - Drug ineffective for unapproved indication [Unknown]
